FAERS Safety Report 20418472 (Version 1)
Quarter: 2022Q1

REPORT INFORMATION
  Report Type: Report from Study
  Country: KR (occurrence: None)
  Receive Date: 20220202
  Receipt Date: 20220202
  Transmission Date: 20220423
  Serious: Yes (Other)
  Sender: FDA-Public Use
  Company Number: KR-Eisai Medical Research-EC-2022-107674

PATIENT
  Age: 20 Year
  Sex: Female

DRUGS (8)
  1. FYCOMPA [Suspect]
     Active Substance: PERAMPANEL
     Indication: Juvenile absence epilepsy
     Route: 048
     Dates: end: 20180625
  2. FYCOMPA [Suspect]
     Active Substance: PERAMPANEL
     Route: 048
     Dates: start: 20180626, end: 20180723
  3. FYCOMPA [Suspect]
     Active Substance: PERAMPANEL
     Route: 048
     Dates: start: 20180724
  4. VALPROIC ACID [Concomitant]
     Active Substance: VALPROIC ACID
  5. LAMOTRIGINE [Concomitant]
     Active Substance: LAMOTRIGINE
  6. TOPIRAMATE [Concomitant]
     Active Substance: TOPIRAMATE
  7. LEVETIRACETAM [Concomitant]
     Active Substance: LEVETIRACETAM
  8. CLOBAZAM [Concomitant]
     Active Substance: CLOBAZAM

REACTIONS (1)
  - Suicide attempt [Unknown]
